FAERS Safety Report 17630129 (Version 1)
Quarter: 2020Q2

REPORT INFORMATION
  Report Type: Spontaneous
  Country: US (occurrence: US)
  Receive Date: 20200402
  Receipt Date: 20200402
  Transmission Date: 20200713
  Serious: No
  Sender: FDA-Public Use
  Company Number: None

PATIENT
  Age: 87 Year
  Sex: Male
  Weight: 57.15 kg

DRUGS (2)
  1. CEFEPIME (CEFEPIME HCL 1GM/VIL INJ, ADD-VANTAGE) [Suspect]
     Active Substance: CEFEPIME HYDROCHLORIDE
     Route: 042
     Dates: start: 20191125, end: 20191125
  2. VANCOMYCIN (VANCOMYCIN HCL500MG/VIL INJ) [Suspect]
     Active Substance: VANCOMYCIN HYDROCHLORIDE
     Route: 042
     Dates: end: 20190125

REACTIONS (5)
  - Confusional state [None]
  - Cystitis [None]
  - Epistaxis [None]
  - Aphthous ulcer [None]
  - Swollen tongue [None]

NARRATIVE: CASE EVENT DATE: 20191126
